FAERS Safety Report 7082145-3 (Version None)
Quarter: 2010Q4

REPORT INFORMATION
  Report Type: 
  Country: None (occurrence: None)
  Receive Date: 20101103
  Receipt Date: 20101029
  Transmission Date: 20110411
  Serious: Yes (Hospitalization)
  Sender: FDA-Public Use
  Company Number: DE-WYE-G06626010

PATIENT
  Sex: Female
  Weight: 51 kg

DRUGS (6)
  1. TORISEL [Suspect]
     Indication: RENAL CELL CARCINOMA
     Route: 042
     Dates: start: 20100101
  2. NULYTELY [Concomitant]
     Dosage: IF REQUIRED
     Route: 048
  3. PLAVIX [Concomitant]
     Route: 048
  4. ONDANSETRON [Concomitant]
     Route: 048
  5. OXYCODONE HCL [Concomitant]
     Indication: PAIN
     Route: 048
  6. METOHEXAL [Concomitant]
     Indication: HYPERTENSION
     Route: 048

REACTIONS (4)
  - HYPERTHYROIDISM [None]
  - PLEURAL EFFUSION [None]
  - PNEUMONIA [None]
  - PULMONARY EMBOLISM [None]
